APPROVED DRUG PRODUCT: ATROPINE
Active Ingredient: ATROPINE
Strength: EQ 2MG SULFATE/0.7ML
Dosage Form/Route: SOLUTION;INTRAMUSCULAR
Application: A071295 | Product #001
Applicant: ABBVIE INC
Approved: Jan 30, 1987 | RLD: No | RS: No | Type: DISCN